FAERS Safety Report 9477466 (Version 1)
Quarter: 2013Q3

REPORT INFORMATION
  Report Type: Spontaneous
  Country: BR (occurrence: BR)
  Receive Date: 20130827
  Receipt Date: 20130827
  Transmission Date: 20140515
  Serious: Yes (Other)
  Sender: FDA-Public Use
  Company Number: BR-AMGEN-BRASP2013059776

PATIENT
  Age: 53 Year
  Sex: Female
  Weight: 60 kg

DRUGS (8)
  1. ENBREL [Suspect]
     Indication: RHEUMATOID ARTHRITIS
     Dosage: 50 MG, ONCE WEEKLY
     Route: 058
     Dates: start: 20110920
  2. DORFLEX [Suspect]
     Indication: PRODUCT USED FOR UNKNOWN INDICATION
     Dosage: UNK
     Route: 065
  3. FENERGAN                           /00033001/ [Concomitant]
     Dosage: 25 MG, 1 TABLET 1X/DAY
     Route: 048
  4. SERTRALINE [Concomitant]
     Dosage: 100 MG, 1 TABLET 1X/DAY
     Route: 048
  5. PREDNISONE [Concomitant]
     Dosage: 5 MG, 1 TABLET 1X/DAY
     Route: 048
  6. OMEPRAZOLE [Concomitant]
     Dosage: 20 MG, 1 TABLET 1X/DAY
     Route: 048
  7. FOLIC ACID [Concomitant]
     Dosage: 5 MG, 1 TABLET 1X/DAY
     Route: 048
  8. METHOTREXATE [Concomitant]
     Dosage: UNK

REACTIONS (4)
  - Laryngeal oedema [Unknown]
  - Chest discomfort [Not Recovered/Not Resolved]
  - Dyspnoea [Not Recovered/Not Resolved]
  - Chest pain [Unknown]
